FAERS Safety Report 8743233 (Version 2)
Quarter: 2012Q4

REPORT INFORMATION
  Report Type: Report from Study
  Country: FR (occurrence: FR)
  Receive Date: 20120824
  Receipt Date: 20121002
  Transmission Date: 20130627
  Serious: Yes (Hospitalization)
  Sender: FDA-Public Use
  Company Number: FR-VIIV HEALTHCARE LIMITED-B0805330A

PATIENT
  Age: 26 Year
  Sex: Female

DRUGS (7)
  1. COMBIVIR [Suspect]
     Indication: ANTIVIRAL PROPHYLAXIS
     Dosage: 1TAB Twice per day
     Route: 048
     Dates: start: 20120319, end: 20120524
  2. KALETRA [Suspect]
     Indication: ANTIVIRAL PROPHYLAXIS
     Dosage: 2TAB Twice per day
     Route: 048
     Dates: start: 20120319, end: 20120524
  3. KIVEXA [Suspect]
     Indication: ANTIVIRAL PROPHYLAXIS
     Dosage: 1TAB Per day
     Route: 048
     Dates: start: 20120305, end: 20120319
  4. TRUVADA [Concomitant]
     Dosage: 245MG Per day
     Route: 048
     Dates: start: 20120524
  5. ISENTRESS [Concomitant]
     Dosage: 800MG Per day
     Route: 048
     Dates: start: 20120524
  6. UVEDOSE [Concomitant]
     Indication: VITAMIN D DEFICIENCY
     Route: 048
     Dates: start: 20111219, end: 20120119
  7. RETROVIR [Concomitant]
     Indication: ANTIVIRAL PROPHYLAXIS
     Route: 042
     Dates: start: 20120605, end: 20120606

REACTIONS (5)
  - Cholestasis of pregnancy [Recovered/Resolved]
  - Adverse reaction [Unknown]
  - Exposure during pregnancy [Unknown]
  - Live birth [Recovered/Resolved]
  - Hepatocellular injury [None]
